FAERS Safety Report 19477856 (Version 2)
Quarter: 2021Q3

REPORT INFORMATION
  Report Type: Report from Study
  Country: US (occurrence: US)
  Receive Date: 20210630
  Receipt Date: 20210811
  Transmission Date: 20211014
  Serious: Yes (Hospitalization, Other)
  Sender: FDA-Public Use
  Company Number: US-GW PHARMA-202106USGW03101

PATIENT

DRUGS (1)
  1. EPIDIOLEX [Suspect]
     Active Substance: CANNABIDIOL
     Indication: PRODUCT USED FOR UNKNOWN INDICATION
     Dosage: 11 MG/KG/DAY, 550 MILLIGRAM, QD (250 MG AM AND 300 MG PM)
     Route: 048

REACTIONS (4)
  - Spinal rod removal [Unknown]
  - Staphylococcal infection [Unknown]
  - Postoperative wound infection [Unknown]
  - Plastic surgery [Unknown]

NARRATIVE: CASE EVENT DATE: 20210521
